FAERS Safety Report 6781585-7 (Version None)
Quarter: 2010Q2

REPORT INFORMATION
  Report Type: 
  Country: None (occurrence: None)
  Receive Date: 20100617
  Receipt Date: 20100617
  Transmission Date: 20101027
  Serious: Yes (Other)
  Sender: FDA-Public Use
  Company Number: None

PATIENT
  Age: 37 Year
  Sex: Female

DRUGS (2)
  1. LEVETIRACETAM [Suspect]
     Indication: EPILEPSY
     Dosage: 1500MG TWICE DAILY PO
     Route: 048
     Dates: start: 20100501
  2. PHENYTOIN [Suspect]
     Dosage: 300 MG DAILY PO
     Route: 048

REACTIONS (2)
  - CONVULSION [None]
  - PRODUCT SUBSTITUTION ISSUE [None]
